FAERS Safety Report 9508413 (Version 1)
Quarter: 2013Q1

REPORT INFORMATION
  Report Type: Spontaneous
  Country: US (occurrence: None)
  Receive Date: 20130305
  Receipt Date: 20130305
  Transmission Date: 20140127
  Serious: Yes (Other)
  Sender: FDA-Public Use
  Company Number: 163-21880-12110989

PATIENT
  Age: 72 Year
  Sex: Female

DRUGS (9)
  1. REVLIMID (LENALIDOMIDE) [Suspect]
     Indication: PLASMA CELL MYELOMA
     Dosage: 21 IN 21 D
     Route: 048
     Dates: start: 20120425
  2. ALPRAZOLAM (ALPRAZOLAM) [Concomitant]
  3. ASPIR-81 (ACETYLSALICYLIC ACID) [Concomitant]
  4. BYSTOLIC (NEBIVOLOL HYDROCHLORIDE) [Concomitant]
  5. CALCIUM (CALCIUM) [Concomitant]
  6. CREON (PANCREATIN) [Concomitant]
  7. CYMBALTA (DULOXETINE HYDROCHLORIDE) [Concomitant]
  8. DEXAMETHASONE (DEXAMETHASONE) [Concomitant]
  9. DOXYCYCLINE HYCLATE (DOXYCYCLINE HYCLATE) [Concomitant]

REACTIONS (1)
  - Drug ineffective [None]
